FAERS Safety Report 6667342-0 (Version None)
Quarter: 2010Q2

REPORT INFORMATION
  Report Type: 
  Country: None (occurrence: None)
  Receive Date: 20100405
  Receipt Date: 20100322
  Transmission Date: 20101027
  Serious: Yes (Hospitalization, Other)
  Sender: FDA-Public Use
  Company Number: US-ELI_LILLY_AND_COMPANY-US201002006617

PATIENT
  Sex: Female

DRUGS (1)
  1. FORTEO [Suspect]
     Indication: OSTEOPOROSIS
     Dosage: 20 UG, DAILY (1/D)
     Dates: start: 20091001

REACTIONS (10)
  - APPETITE DISORDER [None]
  - ASTHENIA [None]
  - DEHYDRATION [None]
  - DIARRHOEA [None]
  - FATIGUE [None]
  - GASTROENTERITIS VIRAL [None]
  - LIVING IN RESIDENTIAL INSTITUTION [None]
  - MENTAL STATUS CHANGES [None]
  - VOMITING [None]
  - WEIGHT DECREASED [None]
